FAERS Safety Report 9740507 (Version 1)
Quarter: 2013Q4

REPORT INFORMATION
  Report Type: Spontaneous
  Country: US (occurrence: US)
  Receive Date: 20131209
  Receipt Date: 20131209
  Transmission Date: 20140711
  Serious: No
  Sender: FDA-Public Use
  Company Number: US-BIOGENIDEC-2013BI095156

PATIENT
  Age: 60 Year
  Sex: Female

DRUGS (10)
  1. TECFIDERA [Suspect]
     Indication: PRODUCT USED FOR UNKNOWN INDICATION
     Dates: start: 201308
  2. AMPYRA [Concomitant]
     Dates: start: 201005
  3. ACTONEL [Concomitant]
  4. BACLOFEN [Concomitant]
  5. CALCIUM [Concomitant]
  6. DETROL [Concomitant]
  7. EVISTA [Concomitant]
  8. KRILL OMEGA RED OIL [Concomitant]
  9. RANITIDINE HCL [Concomitant]
  10. VITAMIN D [Concomitant]

REACTIONS (1)
  - Rash [Unknown]
